FAERS Safety Report 19726988 (Version 13)
Quarter: 2023Q2

REPORT INFORMATION
  Report Type: Report from Study
  Country: US (occurrence: US)
  Receive Date: 20210819
  Receipt Date: 20230410
  Transmission Date: 20230721
  Serious: No
  Sender: FDA-Public Use
  Company Number: NVSC2021US184596

PATIENT
  Sex: Female
  Weight: 54.422 kg

DRUGS (5)
  1. TREPROSTINIL [Suspect]
     Active Substance: TREPROSTINIL
     Indication: Pulmonary arterial hypertension
     Dosage: 50 (NG/ KG /MIN),CONT
     Route: 058
     Dates: start: 20210810
  2. TREPROSTINIL [Suspect]
     Active Substance: TREPROSTINIL
     Dosage: 62 (NG/ KG /MIN),CONT
     Route: 058
  3. AMBRISENTAN [Concomitant]
     Active Substance: AMBRISENTAN
     Indication: Product used for unknown indication
     Dosage: UNK
     Route: 065
  4. ELIQUIS [Concomitant]
     Active Substance: APIXABAN
     Indication: Product used for unknown indication
     Dosage: UNK
     Route: 065
  5. LETAIRIS [Concomitant]
     Active Substance: AMBRISENTAN
     Indication: Product used for unknown indication
     Dosage: UNK
     Route: 065

REACTIONS (4)
  - Sunburn [Unknown]
  - Fluid retention [Unknown]
  - Injection site pain [Not Recovered/Not Resolved]
  - Injection site irritation [Unknown]
